FAERS Safety Report 14817766 (Version 1)
Quarter: 2018Q2

REPORT INFORMATION
  Report Type: Spontaneous
  Country: CA (occurrence: CA)
  Receive Date: 20180427
  Receipt Date: 20180427
  Transmission Date: 20180711
  Serious: Yes (Other)
  Sender: FDA-Public Use
  Company Number: CA-TEVA-2018-CA-884365

PATIENT
  Age: 39 Year
  Sex: Female

DRUGS (2)
  1. CO OLANZAPINE [Suspect]
     Active Substance: OLANZAPINE
     Indication: SCHIZOPHRENIA
     Route: 065
  2. SEROQUEL [Concomitant]
     Active Substance: QUETIAPINE FUMARATE

REACTIONS (6)
  - Condition aggravated [Recovered/Resolved]
  - Mania [Recovered/Resolved]
  - Product substitution issue [Recovered/Resolved]
  - Sleep disorder [Recovered/Resolved]
  - Drug ineffective [Recovered/Resolved]
  - Psychotic disorder [Recovered/Resolved]
